FAERS Safety Report 8780448 (Version 1)
Quarter: 2012Q4

REPORT INFORMATION
  Report Type: Spontaneous
  Country: US (occurrence: None)
  Receive Date: 20120906
  Receipt Date: 20120906
  Transmission Date: 20130627
  Serious: Yes (Death)
  Sender: FDA-Public Use
  Company Number: None

PATIENT
  Age: 64 Year
  Sex: Female

DRUGS (2)
  1. REVLIMID [Suspect]
     Route: 048
     Dates: start: 200803, end: 201204
  2. EXJADE [Suspect]
     Route: 048

REACTIONS (2)
  - Platelet count decreased [None]
  - Haemorrhage intracranial [None]
